FAERS Safety Report 9270894 (Version 1)
Quarter: 2013Q2

REPORT INFORMATION
  Report Type: Spontaneous
  Country: JP (occurrence: JP)
  Receive Date: 20130505
  Receipt Date: 20130505
  Transmission Date: 20140414
  Serious: No
  Sender: FDA-Public Use
  Company Number: PHHY2013JP043665

PATIENT
  Age: 53 Year
  Sex: Male

DRUGS (3)
  1. TASIGNA [Suspect]
     Indication: CHRONIC MYELOID LEUKAEMIA
     Dosage: 600 MG, DAILY
     Route: 048
     Dates: start: 20120611
  2. TASIGNA [Suspect]
     Dosage: 300 MG, DAILY
     Route: 048
  3. TASIGNA [Suspect]
     Dosage: 600 MG, DAILY
     Route: 048

REACTIONS (3)
  - Rash [Recovered/Resolved]
  - Headache [Recovered/Resolved]
  - Platelet count decreased [Recovered/Resolved]
